FAERS Safety Report 23031777 (Version 11)
Quarter: 2024Q3

REPORT INFORMATION
  Report Type: Spontaneous
  Country: CA (occurrence: CA)
  Receive Date: 20231005
  Receipt Date: 20240802
  Transmission Date: 20241017
  Serious: Yes (Death, Life-Threatening, Other)
  Sender: CHATTEM
  Company Number: CA-SSP-2018SA339770AA

PATIENT
  Age: 58 Year
  Sex: Female

DRUGS (225)
  1. KETOPROFEN [Suspect]
     Active Substance: KETOPROFEN
     Indication: Product used for unknown indication
     Dosage: UNK
     Route: 065
  2. KETOPROFEN [Suspect]
     Active Substance: KETOPROFEN
     Route: 065
  3. KETOPROFEN [Suspect]
     Active Substance: KETOPROFEN
     Dosage: UNK
     Route: 065
  4. KETOPROFEN [Suspect]
     Active Substance: KETOPROFEN
     Route: 065
  5. KETOPROFEN [Suspect]
     Active Substance: KETOPROFEN
     Dosage: DOSE DESCRIPTION : UNK, UNK
     Route: 065
  6. KETOPROFEN [Suspect]
     Active Substance: KETOPROFEN
     Dosage: UNK
     Route: 065
  7. KETOPROFEN [Suspect]
     Active Substance: KETOPROFEN
     Route: 065
  8. KETOPROFEN [Suspect]
     Active Substance: KETOPROFEN
     Dosage: UNK
     Route: 065
  9. KETOPROFEN [Suspect]
     Active Substance: KETOPROFEN
     Route: 065
  10. KETOPROFEN [Suspect]
     Active Substance: KETOPROFEN
     Dosage: DOSE DESCRIPTION : UNK, UNK
     Route: 065
  11. KETOPROFEN [Suspect]
     Active Substance: KETOPROFEN
     Dosage: UNK
     Route: 065
  12. KETOPROFEN [Suspect]
     Active Substance: KETOPROFEN
     Route: 065
  13. KETOPROFEN [Suspect]
     Active Substance: KETOPROFEN
     Dosage: UNK
     Route: 065
  14. KETOPROFEN [Suspect]
     Active Substance: KETOPROFEN
     Route: 065
  15. KETOPROFEN [Suspect]
     Active Substance: KETOPROFEN
     Dosage: DOSE DESCRIPTION : UNK, UNK
     Route: 065
  16. KETOPROFEN [Suspect]
     Active Substance: KETOPROFEN
     Dosage: UNK
     Route: 065
  17. KETOPROFEN [Suspect]
     Active Substance: KETOPROFEN
     Route: 065
  18. KETOPROFEN [Suspect]
     Active Substance: KETOPROFEN
     Dosage: UNK
     Route: 065
  19. KETOPROFEN [Suspect]
     Active Substance: KETOPROFEN
     Route: 065
  20. KETOPROFEN [Suspect]
     Active Substance: KETOPROFEN
     Dosage: DOSE DESCRIPTION : UNK, UNK
     Route: 065
  21. KETOPROFEN [Suspect]
     Active Substance: KETOPROFEN
     Dosage: UNK
     Route: 065
  22. KETOPROFEN [Suspect]
     Active Substance: KETOPROFEN
     Route: 065
  23. KETOPROFEN [Suspect]
     Active Substance: KETOPROFEN
     Dosage: UNK
     Route: 065
  24. KETOPROFEN [Suspect]
     Active Substance: KETOPROFEN
     Route: 065
  25. KETOPROFEN [Suspect]
     Active Substance: KETOPROFEN
     Dosage: DOSE DESCRIPTION : UNK, UNK
     Route: 065
  26. KETOPROFEN [Suspect]
     Active Substance: KETOPROFEN
     Dosage: UNK
     Route: 065
  27. KETOPROFEN [Suspect]
     Active Substance: KETOPROFEN
     Route: 065
  28. KETOPROFEN [Suspect]
     Active Substance: KETOPROFEN
     Dosage: UNK
     Route: 065
  29. KETOPROFEN [Suspect]
     Active Substance: KETOPROFEN
     Route: 065
  30. KETOPROFEN [Suspect]
     Active Substance: KETOPROFEN
     Dosage: DOSE DESCRIPTION : UNK, UNK
     Route: 065
  31. KETOPROFEN [Suspect]
     Active Substance: KETOPROFEN
     Dosage: UNK
     Route: 065
  32. KETOPROFEN [Suspect]
     Active Substance: KETOPROFEN
     Route: 065
  33. KETOPROFEN [Suspect]
     Active Substance: KETOPROFEN
     Dosage: UNK
     Route: 065
  34. KETOPROFEN [Suspect]
     Active Substance: KETOPROFEN
     Route: 065
  35. KETOPROFEN [Suspect]
     Active Substance: KETOPROFEN
     Dosage: DOSE DESCRIPTION : UNK, UNK
     Route: 065
  36. KETOPROFEN [Suspect]
     Active Substance: KETOPROFEN
     Dosage: UNK
     Route: 065
  37. KETOPROFEN [Suspect]
     Active Substance: KETOPROFEN
     Route: 065
  38. KETOPROFEN [Suspect]
     Active Substance: KETOPROFEN
     Dosage: UNK
     Route: 065
  39. KETOPROFEN [Suspect]
     Active Substance: KETOPROFEN
     Route: 065
  40. KETOPROFEN [Suspect]
     Active Substance: KETOPROFEN
     Dosage: DOSE DESCRIPTION : UNK, UNK
     Route: 065
  41. UNISOM SLEEPGELS NIGHTTIME SLEEP-AID [Suspect]
     Active Substance: DIPHENHYDRAMINE HYDROCHLORIDE
     Indication: Product used for unknown indication
     Dosage: 75 MG, QD
     Route: 065
  42. UNISOM SLEEPGELS NIGHTTIME SLEEP-AID [Suspect]
     Active Substance: DIPHENHYDRAMINE HYDROCHLORIDE
     Route: 065
  43. UNISOM SLEEPGELS NIGHTTIME SLEEP-AID [Suspect]
     Active Substance: DIPHENHYDRAMINE HYDROCHLORIDE
     Dosage: 75 MG, QD
     Route: 065
  44. UNISOM SLEEPGELS NIGHTTIME SLEEP-AID [Suspect]
     Active Substance: DIPHENHYDRAMINE HYDROCHLORIDE
     Route: 065
  45. UNISOM SLEEPGELS NIGHTTIME SLEEP-AID [Suspect]
     Active Substance: DIPHENHYDRAMINE HYDROCHLORIDE
     Dosage: DOSE DESCRIPTION : 75 MG, QD
     Route: 065
  46. UNISOM SLEEPGELS NIGHTTIME SLEEP-AID [Suspect]
     Active Substance: DIPHENHYDRAMINE HYDROCHLORIDE
     Dosage: 75 MG, QD
     Route: 065
  47. UNISOM SLEEPGELS NIGHTTIME SLEEP-AID [Suspect]
     Active Substance: DIPHENHYDRAMINE HYDROCHLORIDE
     Route: 065
  48. UNISOM SLEEPGELS NIGHTTIME SLEEP-AID [Suspect]
     Active Substance: DIPHENHYDRAMINE HYDROCHLORIDE
     Dosage: 75 MG, QD
     Route: 065
  49. UNISOM SLEEPGELS NIGHTTIME SLEEP-AID [Suspect]
     Active Substance: DIPHENHYDRAMINE HYDROCHLORIDE
     Route: 065
  50. UNISOM SLEEPGELS NIGHTTIME SLEEP-AID [Suspect]
     Active Substance: DIPHENHYDRAMINE HYDROCHLORIDE
     Dosage: DOSE DESCRIPTION : 75 MG, QD
     Route: 065
  51. UNISOM SLEEPGELS NIGHTTIME SLEEP-AID [Suspect]
     Active Substance: DIPHENHYDRAMINE HYDROCHLORIDE
     Dosage: 75 MG, QD
     Route: 065
  52. UNISOM SLEEPGELS NIGHTTIME SLEEP-AID [Suspect]
     Active Substance: DIPHENHYDRAMINE HYDROCHLORIDE
     Route: 065
  53. UNISOM SLEEPGELS NIGHTTIME SLEEP-AID [Suspect]
     Active Substance: DIPHENHYDRAMINE HYDROCHLORIDE
     Dosage: 75 MG, QD
     Route: 065
  54. UNISOM SLEEPGELS NIGHTTIME SLEEP-AID [Suspect]
     Active Substance: DIPHENHYDRAMINE HYDROCHLORIDE
     Route: 065
  55. UNISOM SLEEPGELS NIGHTTIME SLEEP-AID [Suspect]
     Active Substance: DIPHENHYDRAMINE HYDROCHLORIDE
     Dosage: DOSE DESCRIPTION : 75 MG, QD
     Route: 065
  56. UNISOM SLEEPGELS NIGHTTIME SLEEP-AID [Suspect]
     Active Substance: DIPHENHYDRAMINE HYDROCHLORIDE
     Dosage: 75 MG, QD
     Route: 065
  57. UNISOM SLEEPGELS NIGHTTIME SLEEP-AID [Suspect]
     Active Substance: DIPHENHYDRAMINE HYDROCHLORIDE
     Route: 065
  58. UNISOM SLEEPGELS NIGHTTIME SLEEP-AID [Suspect]
     Active Substance: DIPHENHYDRAMINE HYDROCHLORIDE
     Dosage: 75 MG, QD
     Route: 065
  59. UNISOM SLEEPGELS NIGHTTIME SLEEP-AID [Suspect]
     Active Substance: DIPHENHYDRAMINE HYDROCHLORIDE
     Route: 065
  60. UNISOM SLEEPGELS NIGHTTIME SLEEP-AID [Suspect]
     Active Substance: DIPHENHYDRAMINE HYDROCHLORIDE
     Dosage: DOSE DESCRIPTION : 75 MG, QD
     Route: 065
  61. UNISOM SLEEPGELS NIGHTTIME SLEEP-AID [Suspect]
     Active Substance: DIPHENHYDRAMINE HYDROCHLORIDE
     Dosage: 75 MG, QD
     Route: 065
  62. UNISOM SLEEPGELS NIGHTTIME SLEEP-AID [Suspect]
     Active Substance: DIPHENHYDRAMINE HYDROCHLORIDE
     Route: 065
  63. UNISOM SLEEPGELS NIGHTTIME SLEEP-AID [Suspect]
     Active Substance: DIPHENHYDRAMINE HYDROCHLORIDE
     Dosage: 75 MG, QD
     Route: 065
  64. UNISOM SLEEPGELS NIGHTTIME SLEEP-AID [Suspect]
     Active Substance: DIPHENHYDRAMINE HYDROCHLORIDE
     Route: 065
  65. UNISOM SLEEPGELS NIGHTTIME SLEEP-AID [Suspect]
     Active Substance: DIPHENHYDRAMINE HYDROCHLORIDE
     Dosage: DOSE DESCRIPTION : 75 MG, QD
     Route: 065
  66. UNISOM SLEEPGELS NIGHTTIME SLEEP-AID [Suspect]
     Active Substance: DIPHENHYDRAMINE HYDROCHLORIDE
     Dosage: 75 MG, QD
     Route: 065
  67. UNISOM SLEEPGELS NIGHTTIME SLEEP-AID [Suspect]
     Active Substance: DIPHENHYDRAMINE HYDROCHLORIDE
     Route: 065
  68. UNISOM SLEEPGELS NIGHTTIME SLEEP-AID [Suspect]
     Active Substance: DIPHENHYDRAMINE HYDROCHLORIDE
     Dosage: 75 MG, QD
     Route: 065
  69. UNISOM SLEEPGELS NIGHTTIME SLEEP-AID [Suspect]
     Active Substance: DIPHENHYDRAMINE HYDROCHLORIDE
     Route: 065
  70. UNISOM SLEEPGELS NIGHTTIME SLEEP-AID [Suspect]
     Active Substance: DIPHENHYDRAMINE HYDROCHLORIDE
     Dosage: DOSE DESCRIPTION : 75 MG, QD
     Route: 065
  71. UNISOM SLEEPGELS NIGHTTIME SLEEP-AID [Suspect]
     Active Substance: DIPHENHYDRAMINE HYDROCHLORIDE
     Dosage: 75 MG, QD
     Route: 065
  72. UNISOM SLEEPGELS NIGHTTIME SLEEP-AID [Suspect]
     Active Substance: DIPHENHYDRAMINE HYDROCHLORIDE
     Route: 065
  73. UNISOM SLEEPGELS NIGHTTIME SLEEP-AID [Suspect]
     Active Substance: DIPHENHYDRAMINE HYDROCHLORIDE
     Dosage: 75 MG, QD
     Route: 065
  74. UNISOM SLEEPGELS NIGHTTIME SLEEP-AID [Suspect]
     Active Substance: DIPHENHYDRAMINE HYDROCHLORIDE
     Route: 065
  75. UNISOM SLEEPGELS NIGHTTIME SLEEP-AID [Suspect]
     Active Substance: DIPHENHYDRAMINE HYDROCHLORIDE
     Dosage: DOSE DESCRIPTION : 75 MG, QD
     Route: 065
  76. UNISOM SLEEPGELS NIGHTTIME SLEEP-AID [Suspect]
     Active Substance: DIPHENHYDRAMINE HYDROCHLORIDE
     Dosage: 75 MG, QD
     Route: 065
  77. UNISOM SLEEPGELS NIGHTTIME SLEEP-AID [Suspect]
     Active Substance: DIPHENHYDRAMINE HYDROCHLORIDE
     Route: 065
  78. UNISOM SLEEPGELS NIGHTTIME SLEEP-AID [Suspect]
     Active Substance: DIPHENHYDRAMINE HYDROCHLORIDE
     Dosage: 75 MG, QD
     Route: 065
  79. UNISOM SLEEPGELS NIGHTTIME SLEEP-AID [Suspect]
     Active Substance: DIPHENHYDRAMINE HYDROCHLORIDE
     Route: 065
  80. UNISOM SLEEPGELS NIGHTTIME SLEEP-AID [Suspect]
     Active Substance: DIPHENHYDRAMINE HYDROCHLORIDE
     Dosage: DOSE DESCRIPTION : 75 MG, QD
     Route: 065
  81. CETIRIZINE HYDROCHLORIDE [Suspect]
     Active Substance: CETIRIZINE HYDROCHLORIDE
     Indication: Product used for unknown indication
     Dosage: 20 MG, QD
     Route: 065
  82. CETIRIZINE HYDROCHLORIDE [Suspect]
     Active Substance: CETIRIZINE HYDROCHLORIDE
     Route: 065
  83. CETIRIZINE HYDROCHLORIDE [Suspect]
     Active Substance: CETIRIZINE HYDROCHLORIDE
     Dosage: 20 MG, QD
     Route: 065
  84. CETIRIZINE HYDROCHLORIDE [Suspect]
     Active Substance: CETIRIZINE HYDROCHLORIDE
     Route: 065
  85. CETIRIZINE HYDROCHLORIDE [Suspect]
     Active Substance: CETIRIZINE HYDROCHLORIDE
     Dosage: DOSE DESCRIPTION : 20 MG, QD
     Route: 065
  86. CETIRIZINE HYDROCHLORIDE [Suspect]
     Active Substance: CETIRIZINE HYDROCHLORIDE
     Dosage: 20 MG, QD
     Route: 065
  87. CETIRIZINE HYDROCHLORIDE [Suspect]
     Active Substance: CETIRIZINE HYDROCHLORIDE
     Route: 065
  88. CETIRIZINE HYDROCHLORIDE [Suspect]
     Active Substance: CETIRIZINE HYDROCHLORIDE
     Dosage: 20 MG, QD
     Route: 065
  89. CETIRIZINE HYDROCHLORIDE [Suspect]
     Active Substance: CETIRIZINE HYDROCHLORIDE
     Route: 065
  90. CETIRIZINE HYDROCHLORIDE [Suspect]
     Active Substance: CETIRIZINE HYDROCHLORIDE
     Dosage: DOSE DESCRIPTION : 20 MG, QD
     Route: 065
  91. CETIRIZINE HYDROCHLORIDE [Suspect]
     Active Substance: CETIRIZINE HYDROCHLORIDE
     Dosage: 20 MG, QD
     Route: 065
  92. CETIRIZINE HYDROCHLORIDE [Suspect]
     Active Substance: CETIRIZINE HYDROCHLORIDE
     Route: 065
  93. CETIRIZINE HYDROCHLORIDE [Suspect]
     Active Substance: CETIRIZINE HYDROCHLORIDE
     Dosage: 20 MG, QD
     Route: 065
  94. CETIRIZINE HYDROCHLORIDE [Suspect]
     Active Substance: CETIRIZINE HYDROCHLORIDE
     Route: 065
  95. CETIRIZINE HYDROCHLORIDE [Suspect]
     Active Substance: CETIRIZINE HYDROCHLORIDE
     Dosage: DOSE DESCRIPTION : 20 MG, QD
     Route: 065
  96. CETIRIZINE HYDROCHLORIDE [Suspect]
     Active Substance: CETIRIZINE HYDROCHLORIDE
     Dosage: 20 MG, QD
     Route: 065
  97. CETIRIZINE HYDROCHLORIDE [Suspect]
     Active Substance: CETIRIZINE HYDROCHLORIDE
     Route: 065
  98. CETIRIZINE HYDROCHLORIDE [Suspect]
     Active Substance: CETIRIZINE HYDROCHLORIDE
     Dosage: 20 MG, QD
     Route: 065
  99. CETIRIZINE HYDROCHLORIDE [Suspect]
     Active Substance: CETIRIZINE HYDROCHLORIDE
     Route: 065
  100. CETIRIZINE HYDROCHLORIDE [Suspect]
     Active Substance: CETIRIZINE HYDROCHLORIDE
     Dosage: DOSE DESCRIPTION : 20 MG, QD
     Route: 065
  101. CETIRIZINE HYDROCHLORIDE [Suspect]
     Active Substance: CETIRIZINE HYDROCHLORIDE
     Dosage: 20 MG, QD
     Route: 065
  102. CETIRIZINE HYDROCHLORIDE [Suspect]
     Active Substance: CETIRIZINE HYDROCHLORIDE
     Route: 065
  103. CETIRIZINE HYDROCHLORIDE [Suspect]
     Active Substance: CETIRIZINE HYDROCHLORIDE
     Dosage: 20 MG, QD
     Route: 065
  104. CETIRIZINE HYDROCHLORIDE [Suspect]
     Active Substance: CETIRIZINE HYDROCHLORIDE
     Route: 065
  105. CETIRIZINE HYDROCHLORIDE [Suspect]
     Active Substance: CETIRIZINE HYDROCHLORIDE
     Dosage: DOSE DESCRIPTION : 20 MG, QD
     Route: 065
  106. CETIRIZINE HYDROCHLORIDE [Suspect]
     Active Substance: CETIRIZINE HYDROCHLORIDE
     Dosage: 20 MG, QD
     Route: 065
  107. CETIRIZINE HYDROCHLORIDE [Suspect]
     Active Substance: CETIRIZINE HYDROCHLORIDE
     Route: 065
  108. CETIRIZINE HYDROCHLORIDE [Suspect]
     Active Substance: CETIRIZINE HYDROCHLORIDE
     Dosage: 20 MG, QD
     Route: 065
  109. CETIRIZINE HYDROCHLORIDE [Suspect]
     Active Substance: CETIRIZINE HYDROCHLORIDE
     Route: 065
  110. CETIRIZINE HYDROCHLORIDE [Suspect]
     Active Substance: CETIRIZINE HYDROCHLORIDE
     Dosage: DOSE DESCRIPTION : 20 MG, QD
     Route: 065
  111. CETIRIZINE HYDROCHLORIDE [Suspect]
     Active Substance: CETIRIZINE HYDROCHLORIDE
     Dosage: 20 MG, QD
     Route: 065
  112. CETIRIZINE HYDROCHLORIDE [Suspect]
     Active Substance: CETIRIZINE HYDROCHLORIDE
     Route: 065
  113. CETIRIZINE HYDROCHLORIDE [Suspect]
     Active Substance: CETIRIZINE HYDROCHLORIDE
     Dosage: 20 MG, QD
     Route: 065
  114. CETIRIZINE HYDROCHLORIDE [Suspect]
     Active Substance: CETIRIZINE HYDROCHLORIDE
     Route: 065
  115. CETIRIZINE HYDROCHLORIDE [Suspect]
     Active Substance: CETIRIZINE HYDROCHLORIDE
     Dosage: DOSE DESCRIPTION : 20 MG, QD
     Route: 065
  116. CETIRIZINE HYDROCHLORIDE [Suspect]
     Active Substance: CETIRIZINE HYDROCHLORIDE
     Dosage: 20 MG, QD
     Route: 065
  117. CETIRIZINE HYDROCHLORIDE [Suspect]
     Active Substance: CETIRIZINE HYDROCHLORIDE
     Route: 065
  118. CETIRIZINE HYDROCHLORIDE [Suspect]
     Active Substance: CETIRIZINE HYDROCHLORIDE
     Dosage: 20 MG, QD
     Route: 065
  119. CETIRIZINE HYDROCHLORIDE [Suspect]
     Active Substance: CETIRIZINE HYDROCHLORIDE
     Route: 065
  120. CETIRIZINE HYDROCHLORIDE [Suspect]
     Active Substance: CETIRIZINE HYDROCHLORIDE
     Dosage: DOSE DESCRIPTION : 20 MG, QD
     Route: 065
  121. PANTOPRAZOLE [Suspect]
     Active Substance: PANTOPRAZOLE
     Indication: Product used for unknown indication
     Dosage: DOSE DESCRIPTION : UNK, UNK
     Route: 065
  122. PANTOPRAZOLE [Suspect]
     Active Substance: PANTOPRAZOLE
     Route: 065
  123. PANTOPRAZOLE [Suspect]
     Active Substance: PANTOPRAZOLE
     Dosage: DOSE DESCRIPTION : UNK, UNK
     Route: 065
  124. PANTOPRAZOLE [Suspect]
     Active Substance: PANTOPRAZOLE
     Route: 065
  125. PANTOPRAZOLE [Suspect]
     Active Substance: PANTOPRAZOLE
     Dosage: DOSE DESCRIPTION : UNK, UNK
     Route: 065
  126. PANTOPRAZOLE [Suspect]
     Active Substance: PANTOPRAZOLE
     Dosage: DOSE DESCRIPTION : UNK, UNK
     Route: 065
  127. PANTOPRAZOLE [Suspect]
     Active Substance: PANTOPRAZOLE
     Route: 065
  128. PANTOPRAZOLE [Suspect]
     Active Substance: PANTOPRAZOLE
     Dosage: DOSE DESCRIPTION : UNK, UNK
     Route: 065
  129. PANTOPRAZOLE [Suspect]
     Active Substance: PANTOPRAZOLE
     Route: 065
  130. PANTOPRAZOLE [Suspect]
     Active Substance: PANTOPRAZOLE
     Dosage: DOSE DESCRIPTION : UNK, UNK
     Route: 065
  131. PANTOPRAZOLE [Suspect]
     Active Substance: PANTOPRAZOLE
     Dosage: DOSE DESCRIPTION : UNK, UNK
     Route: 065
  132. PANTOPRAZOLE [Suspect]
     Active Substance: PANTOPRAZOLE
     Route: 065
  133. PANTOPRAZOLE [Suspect]
     Active Substance: PANTOPRAZOLE
     Dosage: DOSE DESCRIPTION : UNK, UNK
     Route: 065
  134. PANTOPRAZOLE [Suspect]
     Active Substance: PANTOPRAZOLE
     Route: 065
  135. PANTOPRAZOLE [Suspect]
     Active Substance: PANTOPRAZOLE
     Dosage: DOSE DESCRIPTION : UNK, UNK
     Route: 065
  136. PANTOPRAZOLE [Suspect]
     Active Substance: PANTOPRAZOLE
     Dosage: DOSE DESCRIPTION : UNK, UNK
     Route: 065
  137. PANTOPRAZOLE [Suspect]
     Active Substance: PANTOPRAZOLE
     Route: 065
  138. PANTOPRAZOLE [Suspect]
     Active Substance: PANTOPRAZOLE
     Dosage: DOSE DESCRIPTION : UNK, UNK
     Route: 065
  139. PANTOPRAZOLE [Suspect]
     Active Substance: PANTOPRAZOLE
     Route: 065
  140. PANTOPRAZOLE [Suspect]
     Active Substance: PANTOPRAZOLE
     Dosage: DOSE DESCRIPTION : UNK, UNK
     Route: 065
  141. PANTOPRAZOLE [Suspect]
     Active Substance: PANTOPRAZOLE
     Dosage: DOSE DESCRIPTION : UNK, UNK
     Route: 065
  142. PANTOPRAZOLE [Suspect]
     Active Substance: PANTOPRAZOLE
     Route: 065
  143. PANTOPRAZOLE [Suspect]
     Active Substance: PANTOPRAZOLE
     Dosage: DOSE DESCRIPTION : UNK, UNK
     Route: 065
  144. PANTOPRAZOLE [Suspect]
     Active Substance: PANTOPRAZOLE
     Route: 065
  145. PANTOPRAZOLE [Suspect]
     Active Substance: PANTOPRAZOLE
     Dosage: DOSE DESCRIPTION : UNK, UNK
     Route: 065
  146. PANTOPRAZOLE [Suspect]
     Active Substance: PANTOPRAZOLE
     Dosage: DOSE DESCRIPTION : UNK, UNK
     Route: 065
  147. PANTOPRAZOLE [Suspect]
     Active Substance: PANTOPRAZOLE
     Route: 065
  148. PANTOPRAZOLE [Suspect]
     Active Substance: PANTOPRAZOLE
     Dosage: DOSE DESCRIPTION : UNK, UNK
     Route: 065
  149. PANTOPRAZOLE [Suspect]
     Active Substance: PANTOPRAZOLE
     Route: 065
  150. PANTOPRAZOLE [Suspect]
     Active Substance: PANTOPRAZOLE
     Dosage: DOSE DESCRIPTION : UNK, UNK
     Route: 065
  151. PANTOPRAZOLE [Suspect]
     Active Substance: PANTOPRAZOLE
     Dosage: DOSE DESCRIPTION : UNK, UNK
     Route: 065
  152. PANTOPRAZOLE [Suspect]
     Active Substance: PANTOPRAZOLE
     Route: 065
  153. PANTOPRAZOLE [Suspect]
     Active Substance: PANTOPRAZOLE
     Dosage: DOSE DESCRIPTION : UNK, UNK
     Route: 065
  154. PANTOPRAZOLE [Suspect]
     Active Substance: PANTOPRAZOLE
     Route: 065
  155. PANTOPRAZOLE [Suspect]
     Active Substance: PANTOPRAZOLE
     Dosage: DOSE DESCRIPTION : UNK, UNK
     Route: 065
  156. PANTOPRAZOLE [Suspect]
     Active Substance: PANTOPRAZOLE
     Dosage: DOSE DESCRIPTION : UNK, UNK
     Route: 065
  157. PANTOPRAZOLE [Suspect]
     Active Substance: PANTOPRAZOLE
     Route: 065
  158. PANTOPRAZOLE [Suspect]
     Active Substance: PANTOPRAZOLE
     Dosage: DOSE DESCRIPTION : UNK, UNK
     Route: 065
  159. PANTOPRAZOLE [Suspect]
     Active Substance: PANTOPRAZOLE
     Route: 065
  160. PANTOPRAZOLE [Suspect]
     Active Substance: PANTOPRAZOLE
     Dosage: DOSE DESCRIPTION : UNK, UNK
     Route: 065
  161. ACETAMINOPHEN [Suspect]
     Active Substance: ACETAMINOPHEN
     Indication: Product used for unknown indication
     Dosage: UNK
     Route: 065
  162. ACETAMINOPHEN [Suspect]
     Active Substance: ACETAMINOPHEN
     Route: 065
  163. ACETAMINOPHEN [Suspect]
     Active Substance: ACETAMINOPHEN
     Dosage: UNK
     Route: 065
  164. ACETAMINOPHEN [Suspect]
     Active Substance: ACETAMINOPHEN
     Route: 065
  165. ACETAMINOPHEN [Suspect]
     Active Substance: ACETAMINOPHEN
     Dosage: DOSE DESCRIPTION : UNK, UNK
     Route: 065
  166. ACETAMINOPHEN [Suspect]
     Active Substance: ACETAMINOPHEN
     Dosage: UNK
     Route: 065
  167. ACETAMINOPHEN [Suspect]
     Active Substance: ACETAMINOPHEN
     Route: 065
  168. ACETAMINOPHEN [Suspect]
     Active Substance: ACETAMINOPHEN
     Dosage: UNK
     Route: 065
  169. ACETAMINOPHEN [Suspect]
     Active Substance: ACETAMINOPHEN
     Route: 065
  170. ACETAMINOPHEN [Suspect]
     Active Substance: ACETAMINOPHEN
     Dosage: DOSE DESCRIPTION : UNK, UNK
     Route: 065
  171. ACETAMINOPHEN [Suspect]
     Active Substance: ACETAMINOPHEN
     Dosage: UNK
     Route: 065
  172. ACETAMINOPHEN [Suspect]
     Active Substance: ACETAMINOPHEN
     Route: 065
  173. ACETAMINOPHEN [Suspect]
     Active Substance: ACETAMINOPHEN
     Dosage: UNK
     Route: 065
  174. ACETAMINOPHEN [Suspect]
     Active Substance: ACETAMINOPHEN
     Route: 065
  175. ACETAMINOPHEN [Suspect]
     Active Substance: ACETAMINOPHEN
     Dosage: DOSE DESCRIPTION : UNK, UNK
     Route: 065
  176. ACETAMINOPHEN [Suspect]
     Active Substance: ACETAMINOPHEN
     Dosage: UNK
     Route: 065
  177. ACETAMINOPHEN [Suspect]
     Active Substance: ACETAMINOPHEN
     Route: 065
  178. ACETAMINOPHEN [Suspect]
     Active Substance: ACETAMINOPHEN
     Dosage: UNK
     Route: 065
  179. ACETAMINOPHEN [Suspect]
     Active Substance: ACETAMINOPHEN
     Route: 065
  180. ACETAMINOPHEN [Suspect]
     Active Substance: ACETAMINOPHEN
     Dosage: DOSE DESCRIPTION : UNK, UNK
     Route: 065
  181. ACETAMINOPHEN [Suspect]
     Active Substance: ACETAMINOPHEN
     Dosage: UNK
     Route: 065
  182. ACETAMINOPHEN [Suspect]
     Active Substance: ACETAMINOPHEN
     Route: 065
  183. ACETAMINOPHEN [Suspect]
     Active Substance: ACETAMINOPHEN
     Dosage: UNK
     Route: 065
  184. ACETAMINOPHEN [Suspect]
     Active Substance: ACETAMINOPHEN
     Route: 065
  185. ACETAMINOPHEN [Suspect]
     Active Substance: ACETAMINOPHEN
     Dosage: DOSE DESCRIPTION : UNK, UNK
     Route: 065
  186. ACETAMINOPHEN [Suspect]
     Active Substance: ACETAMINOPHEN
     Dosage: UNK
     Route: 065
  187. ACETAMINOPHEN [Suspect]
     Active Substance: ACETAMINOPHEN
     Route: 065
  188. ACETAMINOPHEN [Suspect]
     Active Substance: ACETAMINOPHEN
     Dosage: UNK
     Route: 065
  189. ACETAMINOPHEN [Suspect]
     Active Substance: ACETAMINOPHEN
     Route: 065
  190. ACETAMINOPHEN [Suspect]
     Active Substance: ACETAMINOPHEN
     Dosage: DOSE DESCRIPTION : UNK, UNK
     Route: 065
  191. ACETAMINOPHEN [Suspect]
     Active Substance: ACETAMINOPHEN
     Dosage: UNK
     Route: 065
  192. ACETAMINOPHEN [Suspect]
     Active Substance: ACETAMINOPHEN
     Route: 065
  193. ACETAMINOPHEN [Suspect]
     Active Substance: ACETAMINOPHEN
     Dosage: UNK
     Route: 065
  194. ACETAMINOPHEN [Suspect]
     Active Substance: ACETAMINOPHEN
     Route: 065
  195. ACETAMINOPHEN [Suspect]
     Active Substance: ACETAMINOPHEN
     Dosage: DOSE DESCRIPTION : UNK, UNK
     Route: 065
  196. ACETAMINOPHEN [Suspect]
     Active Substance: ACETAMINOPHEN
     Dosage: UNK
     Route: 065
  197. ACETAMINOPHEN [Suspect]
     Active Substance: ACETAMINOPHEN
     Route: 065
  198. ACETAMINOPHEN [Suspect]
     Active Substance: ACETAMINOPHEN
     Dosage: UNK
     Route: 065
  199. ACETAMINOPHEN [Suspect]
     Active Substance: ACETAMINOPHEN
     Route: 065
  200. ACETAMINOPHEN [Suspect]
     Active Substance: ACETAMINOPHEN
     Dosage: DOSE DESCRIPTION : UNK, UNK
     Route: 065
  201. ZANTAC 75 [Suspect]
     Active Substance: RANITIDINE HYDROCHLORIDE
     Indication: Product used for unknown indication
     Dosage: UNK
     Route: 065
  202. ZANTAC 75 [Suspect]
     Active Substance: RANITIDINE HYDROCHLORIDE
     Route: 065
  203. ZANTAC 75 [Suspect]
     Active Substance: RANITIDINE HYDROCHLORIDE
     Dosage: DOSE DESCRIPTION : UNK UNK, UNK
     Route: 065
  204. ZANTAC 75 [Suspect]
     Active Substance: RANITIDINE HYDROCHLORIDE
     Dosage: UNK
     Route: 065
  205. ZANTAC 75 [Suspect]
     Active Substance: RANITIDINE HYDROCHLORIDE
     Route: 065
  206. ZANTAC 75 [Suspect]
     Active Substance: RANITIDINE HYDROCHLORIDE
     Dosage: DOSE DESCRIPTION : UNK UNK, UNK
     Route: 065
  207. ZANTAC 75 [Suspect]
     Active Substance: RANITIDINE HYDROCHLORIDE
     Dosage: UNK
     Route: 065
  208. ZANTAC 75 [Suspect]
     Active Substance: RANITIDINE HYDROCHLORIDE
     Route: 065
  209. ZANTAC 75 [Suspect]
     Active Substance: RANITIDINE HYDROCHLORIDE
     Dosage: DOSE DESCRIPTION : UNK UNK, UNK
     Route: 065
  210. ZANTAC 75 [Suspect]
     Active Substance: RANITIDINE HYDROCHLORIDE
     Dosage: UNK
     Route: 065
  211. ZANTAC 75 [Suspect]
     Active Substance: RANITIDINE HYDROCHLORIDE
     Route: 065
  212. ZANTAC 75 [Suspect]
     Active Substance: RANITIDINE HYDROCHLORIDE
     Dosage: DOSE DESCRIPTION : UNK UNK, UNK
     Route: 065
  213. ZANTAC 75 [Suspect]
     Active Substance: RANITIDINE HYDROCHLORIDE
     Dosage: UNK
     Route: 065
  214. ZANTAC 75 [Suspect]
     Active Substance: RANITIDINE HYDROCHLORIDE
     Route: 065
  215. ZANTAC 75 [Suspect]
     Active Substance: RANITIDINE HYDROCHLORIDE
     Dosage: DOSE DESCRIPTION : UNK UNK, UNK
     Route: 065
  216. ZANTAC 75 [Suspect]
     Active Substance: RANITIDINE HYDROCHLORIDE
     Dosage: UNK
     Route: 065
  217. ZANTAC 75 [Suspect]
     Active Substance: RANITIDINE HYDROCHLORIDE
     Route: 065
  218. ZANTAC 75 [Suspect]
     Active Substance: RANITIDINE HYDROCHLORIDE
     Dosage: DOSE DESCRIPTION : UNK UNK, UNK
     Route: 065
  219. ZANTAC 75 [Suspect]
     Active Substance: RANITIDINE HYDROCHLORIDE
     Dosage: UNK
     Route: 065
  220. ZANTAC 75 [Suspect]
     Active Substance: RANITIDINE HYDROCHLORIDE
     Route: 065
  221. ZANTAC 75 [Suspect]
     Active Substance: RANITIDINE HYDROCHLORIDE
     Dosage: DOSE DESCRIPTION : UNK UNK, UNK
     Route: 065
  222. ZANTAC 75 [Suspect]
     Active Substance: RANITIDINE HYDROCHLORIDE
     Dosage: UNK
     Route: 065
  223. ZANTAC 75 [Suspect]
     Active Substance: RANITIDINE HYDROCHLORIDE
     Route: 065
  224. ZANTAC 75 [Suspect]
     Active Substance: RANITIDINE HYDROCHLORIDE
     Dosage: DOSE DESCRIPTION : UNK UNK, UNK
     Route: 065
  225. SODIUM PICOSULFATE [Suspect]
     Active Substance: SODIUM PICOSULFATE
     Indication: Product used for unknown indication

REACTIONS (40)
  - Hepatic enzyme increased [Fatal]
  - Headache [Fatal]
  - Bursitis [Fatal]
  - Coeliac disease [Fatal]
  - Food allergy [Fatal]
  - Fluid retention [Fatal]
  - Hyperhidrosis [Fatal]
  - Asthma [Fatal]
  - Immunodeficiency [Fatal]
  - Temperature regulation disorder [Fatal]
  - Back pain [Fatal]
  - Rheumatoid arthritis [Fatal]
  - Upper respiratory tract infection [Fatal]
  - Erythema [Fatal]
  - Fatigue [Fatal]
  - Pain [Fatal]
  - Decreased immune responsiveness [Fatal]
  - Drug intolerance [Fatal]
  - Foetal death [Fatal]
  - Infusion related reaction [Fatal]
  - Hypertension [Fatal]
  - Joint swelling [Fatal]
  - Psoriasis [Fatal]
  - Pyrexia [Fatal]
  - Treatment failure [Fatal]
  - Infection [Fatal]
  - Constipation [Fatal]
  - Drug hypersensitivity [Fatal]
  - Hypersensitivity [Fatal]
  - Rash erythematous [Fatal]
  - Rash [Fatal]
  - Thrombocytopenia [Fatal]
  - Contraindicated product administered [Fatal]
  - Drug ineffective [Fatal]
  - Exposure during pregnancy [Fatal]
  - Off label use [Fatal]
  - Intentional product misuse [Fatal]
  - Prescribed overdose [Fatal]
  - Overdose [Fatal]
  - Product use issue [Fatal]
